FAERS Safety Report 8542453-3 (Version None)
Quarter: 2012Q3

REPORT INFORMATION
  Report Type: 
  Country: None (occurrence: None)
  Receive Date: 20120726
  Receipt Date: 20110720
  Transmission Date: 20120928
  Serious: Yes (Hospitalization)
  Sender: FDA-Public Use
  Company Number: US-ASTRAZENECA-2008UW00665

PATIENT
  Age: 377 Month
  Sex: Female
  Weight: 74.8 kg

DRUGS (24)
  1. GLYBURIDE [Concomitant]
  2. DETROL LA [Concomitant]
     Route: 048
     Dates: start: 20040128
  3. SEROQUEL [Suspect]
     Dosage: 25 MG-300 MG
     Route: 048
     Dates: start: 20040914
  4. SEROQUEL [Suspect]
     Dosage: 25 MG-300 MG
     Route: 048
     Dates: start: 20040914
  5. GLIPIZIDE [Concomitant]
  6. KLONOPIN [Concomitant]
  7. HYDROCHLOROTHIAZIDE [Concomitant]
     Dates: start: 20040128
  8. SEROQUEL [Suspect]
     Indication: SLEEP APNOEA SYNDROME
     Dosage: VARIOUS DOSES, INCLUDING BUT NOT LIMITED TO 100 MG, 200 MG, 300 MG
     Route: 048
     Dates: start: 20020101, end: 20060101
  9. LISINOPRIL [Concomitant]
  10. SEROQUEL [Suspect]
     Indication: BIPOLAR DISORDER
     Dosage: VARIOUS DOSES, INCLUDING BUT NOT LIMITED TO 100 MG, 200 MG, 300 MG
     Route: 048
     Dates: start: 20020101, end: 20060101
  11. SEROQUEL [Suspect]
     Indication: DEPRESSION
     Dosage: VARIOUS DOSES, INCLUDING BUT NOT LIMITED TO 100 MG, 200 MG, 300 MG
     Route: 048
     Dates: start: 20020101, end: 20060101
  12. ACTOS [Concomitant]
  13. NAPROXEN [Concomitant]
     Dates: start: 20040128
  14. SEROQUEL [Suspect]
     Dosage: 25 MG BID AND 300 MG HS
     Route: 048
     Dates: start: 20060101
  15. ABILIFY [Concomitant]
     Dates: start: 20070501
  16. ALTACE [Concomitant]
     Dosage: 2.5 MG PO QD (5 MG)
     Dates: start: 20040128
  17. SEROQUEL [Suspect]
     Dosage: 25 MG-300 MG
     Route: 048
     Dates: start: 20040914
  18. SEROQUEL [Suspect]
     Dosage: 25 MG BID AND 300 MG HS
     Route: 048
     Dates: start: 20060101
  19. KLONOPIN [Concomitant]
     Dates: start: 20040128
  20. COLACE [Concomitant]
     Dates: start: 20040128
  21. SEROQUEL [Suspect]
     Dosage: 25 MG BID AND 300 MG HS
     Route: 048
     Dates: start: 20060101
  22. METFORMIN HYDROCHLORIDE [Concomitant]
  23. ZOCOR [Concomitant]
  24. CLINDAMYCIN [Concomitant]

REACTIONS (4)
  - DIABETES MELLITUS [None]
  - BACK PAIN [None]
  - MAMMOPLASTY [None]
  - DIABETES MELLITUS INADEQUATE CONTROL [None]
